FAERS Safety Report 6934104-6 (Version None)
Quarter: 2010Q3

REPORT INFORMATION
  Report Type: 
  Country: None (occurrence: None)
  Receive Date: 20100820
  Receipt Date: 20100811
  Transmission Date: 20110219
  Serious: Yes (Other)
  Sender: FDA-Public Use
  Company Number: JP-MERCK-1007USA00627

PATIENT
  Age: 76 Year
  Sex: Male

DRUGS (6)
  1. JANUVIA [Suspect]
     Indication: DIABETES MELLITUS
     Route: 048
     Dates: start: 20100604
  2. AMARYL [Concomitant]
     Indication: DIABETES MELLITUS
     Route: 048
  3. FAMOTIDINE D [Concomitant]
     Route: 048
  4. ACTOS [Concomitant]
     Indication: DIABETES MELLITUS
     Route: 048
  5. VOGLIBOSE [Concomitant]
     Indication: DIABETES MELLITUS
     Route: 048
  6. LIVALO [Suspect]
     Indication: HYPERCHOLESTEROLAEMIA
     Route: 065

REACTIONS (1)
  - RHABDOMYOLYSIS [None]
